FAERS Safety Report 4966005-7 (Version None)
Quarter: 2006Q2

REPORT INFORMATION
  Report Type: 
  Country: None (occurrence: None)
  Receive Date: 20060407
  Receipt Date: 20060329
  Transmission Date: 20061013
  Serious: Yes (Other)
  Sender: FDA-Public Use
  Company Number: 2006-01010

PATIENT
  Age: 67 Year
  Sex: Female

DRUGS (2)
  1. NICORETTE [Suspect]
     Dosage: 12MG FIVE TIMES PER DAY
     Route: 002
     Dates: start: 19990101
  2. NICOTINE POLACRILEX [Suspect]
     Dosage: 12MG FIVE TIMES PER DAY
     Route: 002
     Dates: start: 20030101

REACTIONS (2)
  - DEPENDENCE [None]
  - DRUG INEFFECTIVE [None]
